FAERS Safety Report 9576909 (Version 1)
Quarter: 2013Q4

REPORT INFORMATION
  Report Type: Spontaneous
  Country: US (occurrence: US)
  Receive Date: 20131001
  Receipt Date: 20131001
  Transmission Date: 20140711
  Serious: No
  Sender: FDA-Public Use
  Company Number: US-AMGEN-USASP2013005332

PATIENT
  Sex: Female

DRUGS (8)
  1. ENBREL [Suspect]
     Indication: RHEUMATOID ARTHRITIS
     Dosage: 50 MG, QWK
     Route: 058
  2. BENAZEPRIL [Concomitant]
     Dosage: 40 MG, UNK
  3. CRESTOR [Concomitant]
     Dosage: 10 MG, UNK
  4. METOPROLOL TARTRATE [Concomitant]
     Dosage: 25 MG, UNK
  5. ASA [Concomitant]
     Dosage: 81 MG, UNK
  6. VITAMIN D                          /00107901/ [Concomitant]
     Dosage: 1000 UNIT, UNK
  7. PEPCID AC [Concomitant]
     Dosage: 20 MG, UNK
  8. ZETIA [Concomitant]
     Dosage: 10 MG, UNK

REACTIONS (2)
  - Pruritus generalised [Unknown]
  - Injection site pain [Unknown]
